FAERS Safety Report 11060276 (Version 1)
Quarter: 2015Q2

REPORT INFORMATION
  Report Type: Report from Study
  Country: US (occurrence: US)
  Receive Date: 20150423
  Receipt Date: 20150423
  Transmission Date: 20150821
  Serious: No
  Sender: FDA-Public Use
  Company Number: US-AMGEN-USASL2015013397

PATIENT
  Age: 66 Year
  Sex: Male

DRUGS (1)
  1. KYPROLIS [Suspect]
     Active Substance: CARFILZOMIB
     Indication: PRODUCT USED FOR UNKNOWN INDICATION
     Dosage: UNK, UNK
     Route: 042

REACTIONS (5)
  - Bone pain [Unknown]
  - Gingival pain [Not Recovered/Not Resolved]
  - Pain in extremity [Unknown]
  - Dental caries [Unknown]
  - Toothache [Not Recovered/Not Resolved]
